FAERS Safety Report 24410307 (Version 1)
Quarter: 2024Q4

REPORT INFORMATION
  Report Type: Spontaneous
  Country: IN (occurrence: IN)
  Receive Date: 20241008
  Receipt Date: 20241008
  Transmission Date: 20250114
  Serious: Yes (Hospitalization, Other)
  Sender: RANBAXY
  Company Number: IN-SUN PHARMACEUTICAL INDUSTRIES LTD-2024R1-471527

PATIENT
  Sex: Female

DRUGS (10)
  1. PANTOPRAZOLE [Suspect]
     Active Substance: PANTOPRAZOLE
     Indication: Antibiotic prophylaxis
     Dosage: 40 MILLIGRAM
     Route: 064
  2. ATRACURIUM [Suspect]
     Active Substance: ATRACURIUM
     Indication: Anaesthesia
     Dosage: 0.3 MILLIGRAM/KILOGRAM
     Route: 064
  3. CEFUROXIME [Suspect]
     Active Substance: CEFUROXIME
     Indication: Antibiotic prophylaxis
     Dosage: 1.5 GRAM
     Route: 064
  4. ONDANSETRON [Suspect]
     Active Substance: ONDANSETRON
     Indication: Antibiotic prophylaxis
     Dosage: 4 MILLIGRAM
     Route: 064
  5. SEVOFLURANE [Suspect]
     Active Substance: SEVOFLURANE
     Indication: Anaesthesia
     Dosage: 1.0-1.5%
     Route: 064
  6. TRANEXAMIC ACID [Suspect]
     Active Substance: TRANEXAMIC ACID
     Indication: Anaesthesia
     Dosage: 1 GRAM
     Route: 064
  7. AMIKACIN [Suspect]
     Active Substance: AMIKACIN
     Indication: Antibiotic prophylaxis
     Dosage: 750 MILLIGRAM
     Route: 064
  8. GLYCOPYRROLATE [Suspect]
     Active Substance: GLYCOPYRROLATE
     Indication: Anaesthesia
     Dosage: 0.005 MILLIGRAM/KILOGRAM
     Route: 064
  9. SUCCINYLCHOLINE [Suspect]
     Active Substance: SUCCINYLCHOLINE\SUCCINYLCHOLINE CHLORIDE
     Indication: Anaesthesia
     Dosage: 1-1.5 MG/KG BODY WEIGHT
     Route: 064
  10. THIOPENTAL SODIUM [Suspect]
     Active Substance: THIOPENTAL SODIUM
     Indication: Endotracheal intubation
     Dosage: 3 MILLIGRAM/KILOGRAM
     Route: 064

REACTIONS (2)
  - Foetal exposure during pregnancy [Unknown]
  - Premature baby [Unknown]
